FAERS Safety Report 25000789 (Version 1)
Quarter: 2025Q1

REPORT INFORMATION
  Report Type: Spontaneous
  Country: US (occurrence: US)
  Receive Date: 20250222
  Receipt Date: 20250222
  Transmission Date: 20250409
  Serious: No
  Sender: SANOFI AVENTIS
  Company Number: US-SA-2025SA050063

PATIENT
  Age: 61 Year
  Sex: Female

DRUGS (19)
  1. REZUROCK [Suspect]
     Active Substance: BELUMOSUDIL
     Dosage: 200 MG, QD
     Route: 048
  2. ACYCLOVIR [Concomitant]
     Active Substance: ACYCLOVIR
  3. ATOVAQUONE [Concomitant]
     Active Substance: ATOVAQUONE
  4. BIOTIN [Concomitant]
     Active Substance: BIOTIN
  5. CLOBETASOL [Concomitant]
     Active Substance: CLOBETASOL
  6. DESONIDE [Concomitant]
     Active Substance: DESONIDE
  7. FLUOCINONIDE [Concomitant]
     Active Substance: FLUOCINONIDE
  8. LEVOFLOXACIN [Concomitant]
     Active Substance: LEVOFLOXACIN
  9. LEVOTHYROXINE [Concomitant]
     Active Substance: LEVOTHYROXINE
  10. LOTEMAX [Concomitant]
     Active Substance: LOTEPREDNOL ETABONATE
  11. METOPROLOL [Concomitant]
     Active Substance: METOPROLOL
  12. VITAMINS [Concomitant]
     Active Substance: VITAMINS
  13. OMEGA-3 ACIDS [Concomitant]
     Active Substance: OMEGA-3 FATTY ACIDS
  14. POSACONAZOLE [Concomitant]
     Active Substance: POSACONAZOLE
  15. POTASSIUM [Concomitant]
     Active Substance: POTASSIUM
  16. PREDNISONE [Concomitant]
     Active Substance: PREDNISONE
  17. REFRESH CLASSIC [Concomitant]
     Active Substance: POLYVINYL ALCOHOL\POVIDONE
  18. RESTASIS [Concomitant]
     Active Substance: CYCLOSPORINE
  19. VITAMIN D NOS [Concomitant]
     Active Substance: CHOLECALCIFEROL\ERGOCALCIFEROL

REACTIONS (1)
  - Muscular weakness [Not Recovered/Not Resolved]
